FAERS Safety Report 6629428-6 (Version None)
Quarter: 2010Q1

REPORT INFORMATION
  Report Type: 
  Country: None (occurrence: None)
  Receive Date: 20100311
  Receipt Date: 20090716
  Transmission Date: 20100710
  Serious: No
  Sender: FDA-Public Use
  Company Number: US-BIOGENIDEC-2009BI021987

PATIENT
  Age: 29 Year
  Sex: Female

DRUGS (6)
  1. AVONEX [Suspect]
     Indication: MULTIPLE SCLEROSIS
     Route: 030
     Dates: start: 20030101
  2. AVONEX [Suspect]
     Route: 030
     Dates: start: 20010401, end: 20010401
  3. AVONEX [Suspect]
     Route: 030
     Dates: start: 20010401, end: 20010401
  4. AVONEX [Suspect]
     Route: 030
     Dates: start: 20010401, end: 20010401
  5. AVONEX [Suspect]
     Route: 030
     Dates: start: 20010401, end: 20030101
  6. NAPROSYN [Concomitant]
     Indication: PREMEDICATION
     Route: 048

REACTIONS (9)
  - ABDOMINAL DISCOMFORT [None]
  - DARK CIRCLES UNDER EYES [None]
  - DIARRHOEA [None]
  - FEELING ABNORMAL [None]
  - INCREASED TENDENCY TO BRUISE [None]
  - INFLUENZA LIKE ILLNESS [None]
  - MUSCLE SPASMS [None]
  - NAUSEA [None]
  - PYREXIA [None]
